FAERS Safety Report 24689323 (Version 1)
Quarter: 2024Q4

REPORT INFORMATION
  Report Type: Spontaneous
  Country: CA (occurrence: CA)
  Receive Date: 20241203
  Receipt Date: 20241203
  Transmission Date: 20250115
  Serious: Yes (Other)
  Sender: BRISTOL-MYERS SQUIBB COMPANY
  Company Number: CA-BRISTOL-MYERS SQUIBB COMPANY-2024-186946

PATIENT
  Age: 80 Year
  Sex: Female
  Weight: 70.1 kg

DRUGS (1)
  1. ORENCIA [Suspect]
     Active Substance: ABATACEPT
     Indication: Rheumatoid arthritis
     Dosage: DOSE : 125 MG (1ML);     FREQ : ONCE A WEEK
     Route: 058

REACTIONS (2)
  - Parkinson^s disease [Unknown]
  - Product storage error [Unknown]

NARRATIVE: CASE EVENT DATE: 20241126
